FAERS Safety Report 9372227 (Version 2)
Quarter: 2013Q3

REPORT INFORMATION
  Report Type: Spontaneous
  Country: BE (occurrence: BE)
  Receive Date: 20130627
  Receipt Date: 20130718
  Transmission Date: 20140515
  Serious: Yes (Other)
  Sender: FDA-Public Use
  Company Number: BE-ROCHE-1240040

PATIENT
  Age: 36 Year
  Sex: Female
  Weight: 117 kg

DRUGS (17)
  1. HERCEPTIN [Suspect]
     Indication: BREAST CANCER METASTATIC
     Route: 065
     Dates: start: 201011, end: 201208
  2. HERCEPTIN [Suspect]
     Route: 065
     Dates: start: 201301, end: 201304
  3. HERCEPTIN [Suspect]
     Route: 065
     Dates: start: 200904, end: 201304
  4. XELODA [Suspect]
     Indication: BREAST CANCER METASTATIC
     Route: 065
     Dates: start: 201208, end: 201210
  5. AROMASIN [Concomitant]
     Route: 065
     Dates: start: 200904, end: 201003
  6. AROMASIN [Concomitant]
     Route: 065
     Dates: start: 201203, end: 201208
  7. ZOMETA [Concomitant]
     Route: 065
     Dates: start: 200904, end: 201003
  8. TAMOXIFEN [Concomitant]
     Route: 065
     Dates: start: 201003, end: 201008
  9. FASLODEX [Concomitant]
     Route: 065
     Dates: start: 201008, end: 201010
  10. EPIRUBICIN [Concomitant]
     Dosage: CUMULATIVE DOSE: 100 MG / M2.
     Route: 065
     Dates: start: 201010
  11. CYCLOPHOSPHAMIDE [Concomitant]
     Route: 065
     Dates: start: 201010
  12. TAXOTERE [Concomitant]
     Route: 065
     Dates: start: 201011, end: 201104
  13. FEMARA [Concomitant]
     Route: 065
     Dates: start: 201104, end: 201109
  14. NAVELBINE [Concomitant]
     Route: 065
     Dates: start: 201109, end: 201203
  15. LAPATINIB [Concomitant]
     Route: 065
     Dates: start: 201208, end: 201210
  16. ERIBULIN [Concomitant]
     Route: 065
     Dates: start: 201301, end: 201304
  17. DOXORUBICIN [Concomitant]
     Dosage: CUMULATIVE DOSE: 60 MG / M2 X 3
     Route: 065
     Dates: start: 20130419, end: 20130531

REACTIONS (8)
  - Metastases to bone [Unknown]
  - Metastasis [Unknown]
  - Cardiac disorder [Recovering/Resolving]
  - Skin lesion [Unknown]
  - Disease progression [Unknown]
  - Pulmonary embolism [Unknown]
  - Metastases to lung [Not Recovered/Not Resolved]
  - Disease progression [Not Recovered/Not Resolved]
